FAERS Safety Report 7304676-0 (Version None)
Quarter: 2011Q1

REPORT INFORMATION
  Report Type: 
  Country: None (occurrence: None)
  Receive Date: 20110222
  Receipt Date: 20110207
  Transmission Date: 20110831
  Serious: Yes (Hospitalization)
  Sender: FDA-Public Use
  Company Number: US-CELGENEUS-163-21880-10111051

PATIENT
  Sex: Female

DRUGS (16)
  1. OMEPRAZOLE [Concomitant]
     Route: 048
  2. SPIRONOLACTONE [Concomitant]
     Route: 048
  3. REVLIMID [Suspect]
     Indication: SYSTEMIC LUPUS ERYTHEMATOSUS
     Route: 048
     Dates: start: 20080501
  4. MYCOPHENOLATE MOFETIL [Concomitant]
     Route: 048
  5. HYDROXYCHLOROQUINE [Concomitant]
     Route: 048
  6. REVLIMID [Suspect]
     Route: 048
     Dates: start: 20101020
  7. REVLIMID [Suspect]
     Route: 048
     Dates: start: 20101102
  8. ONDANSETRON [Concomitant]
     Route: 048
  9. REVLIMID [Suspect]
     Route: 048
     Dates: start: 20101101
  10. PREDNISONE [Concomitant]
     Route: 048
  11. FUROSEMIDE [Concomitant]
     Route: 048
  12. CALCITRIOL [Concomitant]
     Route: 048
  13. ASA [Concomitant]
     Route: 048
  14. LOSARTAN [Concomitant]
     Route: 048
  15. LISINOPRIL [Concomitant]
     Route: 048
  16. CALCIUM CITRATE PLUS VITAMIN D [Concomitant]
     Route: 048

REACTIONS (2)
  - FLUID RETENTION [None]
  - HAEMOGLOBIN DECREASED [None]
